FAERS Safety Report 25136136 (Version 4)
Quarter: 2025Q2

REPORT INFORMATION
  Report Type: Spontaneous
  Country: US (occurrence: US)
  Receive Date: 20250328
  Receipt Date: 20250522
  Transmission Date: 20250716
  Serious: Yes (Hospitalization, Other)
  Sender: BIOMARIN
  Company Number: US-SA-2025SA080468

PATIENT

DRUGS (2)
  1. LARONIDASE [Suspect]
     Active Substance: LARONIDASE
     Indication: Mucopolysaccharidosis I
     Dosage: 34.8 MG, QW
     Route: 042
     Dates: start: 202106, end: 202502
  2. LARONIDASE [Suspect]
     Active Substance: LARONIDASE
     Indication: Mucopolysaccharidosis I
     Dosage: 34.8 MG, QW
     Route: 042
     Dates: start: 2025

REACTIONS (11)
  - Pneumonia [Unknown]
  - Mental status changes [Unknown]
  - Anaemia [Unknown]
  - Swelling [Unknown]
  - Condition aggravated [Unknown]
  - Hernia [Unknown]
  - Weight increased [Recovered/Resolved]
  - Fall [Unknown]
  - Head injury [Unknown]
  - Traumatic haemorrhage [Unknown]
  - Fluid retention [Unknown]

NARRATIVE: CASE EVENT DATE: 20250404
